FAERS Safety Report 8158749 (Version 8)
Quarter: 2013Q2

REPORT INFORMATION
  Report Type: Report from Study
  Country: IL (occurrence: IL)
  Receive Date: 20110927
  Receipt Date: 20130419
  Transmission Date: 20140414
  Serious: Yes (Hospitalization)
  Sender: FDA-Public Use
  Company Number: IL-BRISTOL-MYERS SQUIBB COMPANY-16092488

PATIENT
  Age: 81 Year
  Sex: Male

DRUGS (15)
  1. BLINDED: SAXAGLIPTIN [Suspect]
     Indication: TYPE 2 DIABETES MELLITUS
     Dosage: STOP DATE:20SEP2011. RESTART : 20DEC11;LAST DOSE ON 27FEB13
     Dates: start: 20101222
  2. NOVONORM [Suspect]
     Indication: TYPE 2 DIABETES MELLITUS
     Dosage: DRUG INTERRUPTED ON 22SEP2011 RESTART : 20DEC11?02JUL12-ONG:1MG
     Dates: start: 20110616
  3. GLUCO-RITE [Suspect]
     Indication: DIABETES MELLITUS
     Dates: start: 20110925, end: 20120306
  4. BLINDED: PLACEBO [Suspect]
     Indication: TYPE 2 DIABETES MELLITUS
     Dosage: STOPPED: 20SEP11?RESUME DATE: 20DEC11;LAST DOSE ON 27FEB13
     Dates: start: 20101222
  5. PROCOR [Suspect]
  6. MERCAPTIZOL [Suspect]
     Dates: start: 20110825, end: 20110922
  7. COENZYME-Q10 [Suspect]
     Dates: start: 20110821, end: 20110921
  8. ASPIRIN [Concomitant]
     Dosage: 1DF={100MG ON 22DEC10,22MAR11,05SEP11.
  9. GLUCOMIN [Concomitant]
     Dates: start: 20090315
  10. MICROPIRIN [Concomitant]
     Dates: start: 20081211
  11. AMLODIPINE [Concomitant]
     Dates: start: 20091103
  12. FUSID [Concomitant]
     Dates: start: 20110223
  13. ENALADEX [Concomitant]
  14. SIMVASTATINE [Concomitant]
     Dates: start: 20101227, end: 20110921
  15. TELFAST [Concomitant]
     Dates: start: 20110920, end: 20110928

REACTIONS (3)
  - Anaemia [Recovered/Resolved with Sequelae]
  - Transfusion reaction [Recovered/Resolved]
  - Hepatic function abnormal [Recovered/Resolved with Sequelae]
